FAERS Safety Report 8901272 (Version 4)
Quarter: 2014Q1

REPORT INFORMATION
  Report Type: Report from Study
  Country: JP (occurrence: JP)
  Receive Date: 20121109
  Receipt Date: 20140122
  Transmission Date: 20141002
  Serious: Yes (Other)
  Sender: FDA-Public Use
  Company Number: JP-VERTEX PHARMACEUTICAL INC.-2012-021952

PATIENT
  Age: 64 Year
  Sex: Female

DRUGS (13)
  1. VX-950 (TELAPREVIR) [Suspect]
     Indication: CHRONIC HEPATITIS C
     Dosage: 1500 MG, QD
     Route: 048
     Dates: start: 20120719, end: 20120905
  2. VX-950 (TELAPREVIR) [Suspect]
     Dosage: 1000 MG, QD
     Route: 048
     Dates: start: 20120906, end: 20120913
  3. VX-950 (TELAPREVIR) [Suspect]
     Dosage: 500 MG, QD
     Route: 048
     Dates: start: 20120914, end: 20120919
  4. REBETOL [Suspect]
     Indication: CHRONIC HEPATITIS C
     Dosage: 600 MG, QD
     Route: 048
     Dates: start: 20120719, end: 20120829
  5. REBETOL [Suspect]
     Dosage: 400 MG, QD
     Route: 048
     Dates: start: 20120830, end: 20120913
  6. REBETOL [Suspect]
     Dosage: 200 MG, QD
     Route: 048
     Dates: start: 20120914, end: 20120919
  7. PEGINTRON [Suspect]
     Indication: CHRONIC HEPATITIS C
     Dosage: 1.5 ?G/KG, QW
     Route: 058
     Dates: start: 20120719, end: 20120913
  8. DIOVAN [Concomitant]
     Dosage: 80 MG, QD
     Route: 048
  9. AMOBAN [Concomitant]
     Dosage: 7.5 MG, QD
     Route: 048
  10. THYRADIN-S [Concomitant]
     Dosage: 25 ?G, QD
     Route: 048
  11. COCARL [Concomitant]
     Dosage: 400 MG, PRN
     Route: 048
     Dates: start: 20120719
  12. ZYLORIC [Concomitant]
     Dosage: 100 MG, QD
     Route: 048
     Dates: start: 20120726
  13. LANIRAPID [Concomitant]
     Dosage: 0.1 MG, QD
     Route: 048

REACTIONS (2)
  - Retinal haemorrhage [Recovered/Resolved]
  - Anaemia [Recovered/Resolved]
